FAERS Safety Report 6897366-X (Version None)
Quarter: 2010Q3

REPORT INFORMATION
  Report Type: 
  Country: None (occurrence: None)
  Receive Date: 20100802
  Receipt Date: 20070522
  Transmission Date: 20110219
  Serious: No
  Sender: FDA-Public Use
  Company Number: US-PFIZER INC-2007041249

PATIENT
  Sex: Male

DRUGS (2)
  1. LYRICA [Suspect]
  2. BACLOFEN [Suspect]

REACTIONS (5)
  - DIZZINESS [None]
  - DYSKINESIA [None]
  - FATIGUE [None]
  - PAIN [None]
  - TREMOR [None]
